FAERS Safety Report 8595658-X (Version None)
Quarter: 2012Q3

REPORT INFORMATION
  Report Type: 
  Country: None (occurrence: None)
  Receive Date: 20120815
  Receipt Date: 20120809
  Transmission Date: 20120928
  Serious: Yes (Disabling)
  Sender: FDA-Public Use
  Company Number: US-PFIZER INC-2012195062

PATIENT
  Age: 49 Year
  Sex: Female

DRUGS (4)
  1. AZULFIDINE [Suspect]
     Dosage: 1000 MG, 2X/DAY (2 TABS AM, 2 TABS PM)
  2. REQUIP [Concomitant]
     Dosage: 3 MG PER DAY
  3. NAPROXEN SODIUM [Concomitant]
     Dosage: UNK
  4. EFFEXOR XR [Suspect]
     Dosage: 150 MG,  DAILY

REACTIONS (3)
  - SYNOVITIS [None]
  - IMPAIRED WORK ABILITY [None]
  - RHEUMATOID ARTHRITIS [None]
